FAERS Safety Report 22345390 (Version 2)
Quarter: 2023Q2

REPORT INFORMATION
  Report Type: Spontaneous
  Country: FR (occurrence: FR)
  Receive Date: 20230519
  Receipt Date: 20230529
  Transmission Date: 20230721
  Serious: Yes (Other)
  Sender: FDA-Public Use
  Company Number: None

PATIENT
  Age: 63 Year
  Sex: Female
  Weight: 83.5 kg

DRUGS (4)
  1. DAPTOMYCIN [Suspect]
     Active Substance: DAPTOMYCIN
     Indication: Febrile bone marrow aplasia
     Dosage: 820 MG, 1X/DAY
     Route: 042
     Dates: start: 20230117, end: 20230201
  2. PIPERACILLIN SODIUM\TAZOBACTAM SODIUM [Suspect]
     Active Substance: PIPERACILLIN SODIUM\TAZOBACTAM SODIUM
     Indication: Febrile bone marrow aplasia
     Dosage: 4 G, DAILY
     Route: 042
     Dates: start: 20230112, end: 20230129
  3. POSACONAZOLE [Suspect]
     Active Substance: POSACONAZOLE
     Indication: Febrile bone marrow aplasia
     Dosage: 300 MG, 1X/DAY
     Route: 048
     Dates: start: 20230117, end: 20230127
  4. AMBISOME [Suspect]
     Active Substance: AMPHOTERICIN B
     Indication: Febrile bone marrow aplasia
     Dosage: 250 MG, 1X/DAY
     Route: 042
     Dates: start: 20230127, end: 20230201

REACTIONS (2)
  - Rash maculo-papular [Recovered/Resolved]
  - Off label use [Unknown]

NARRATIVE: CASE EVENT DATE: 20230117
